FAERS Safety Report 6780354-1 (Version None)
Quarter: 2010Q2

REPORT INFORMATION
  Report Type: 
  Country: None (occurrence: None)
  Receive Date: 20100618
  Receipt Date: 20100423
  Transmission Date: 20101027
  Serious: Yes (Other)
  Sender: FDA-Public Use
  Company Number: FR-ABBOTT-10P-056-0650433-00

PATIENT
  Sex: Female

DRUGS (13)
  1. HUMIRA [Suspect]
     Indication: RHEUMATOID ARTHRITIS
     Route: 058
     Dates: start: 20040318
  2. TENOXICAM [Concomitant]
     Indication: RHEUMATOID ARTHRITIS
     Route: 048
  3. DAFLON [Concomitant]
     Indication: VENOUS INSUFFICIENCY
     Route: 048
  4. DAFALGAN [Concomitant]
     Indication: RHEUMATOID ARTHRITIS
     Route: 048
  5. TROPHIGIL [Concomitant]
     Indication: URINARY INCONTINENCE
  6. CORTANCYL [Concomitant]
     Indication: RHEUMATOID ARTHRITIS
     Route: 048
     Dates: start: 19930701
  7. RYTHMOL [Concomitant]
     Indication: TACHYCARDIA
     Route: 048
     Dates: start: 19980316
  8. KALEORID [Concomitant]
     Indication: HYPOKALAEMIA
     Route: 048
     Dates: start: 20000615
  9. KALEORID [Concomitant]
     Indication: PROPHYLAXIS
  10. IDEOS [Concomitant]
     Indication: OSTEOPOROSIS PROPHYLAXIS
     Route: 048
     Dates: start: 20000615
  11. IDEOS [Concomitant]
     Indication: PROPHYLAXIS
  12. NOVATREX [Concomitant]
     Indication: RHEUMATOID ARTHRITIS
     Route: 048
     Dates: start: 20030711
  13. NOVATREX [Concomitant]
     Route: 048
     Dates: start: 20030527, end: 20030710

REACTIONS (1)
  - PULMONARY HYPERTENSION [None]
